FAERS Safety Report 7607919-9 (Version None)
Quarter: 2011Q3

REPORT INFORMATION
  Report Type: 
  Country: None (occurrence: None)
  Receive Date: 20110714
  Receipt Date: 20090930
  Transmission Date: 20111222
  Serious: Yes (Death, Other)
  Sender: FDA-Public Use
  Company Number: US-BAYER-200934603NA

PATIENT
  Age: 60 Year
  Sex: Female
  Weight: 111 kg

DRUGS (23)
  1. ZOSYN [Concomitant]
     Dosage: UNK
     Dates: start: 20051025
  2. HYDRALAZINE HCL [Concomitant]
     Dosage: 100 MG, QID
     Route: 048
  3. ALBUMIN (HUMAN) [Concomitant]
     Dosage: 250 ML
     Route: 042
     Dates: start: 20041011
  4. DIGOXIN [Concomitant]
     Dosage: 0.125 MG, QD
     Route: 048
  5. VANCOMYCIN [Concomitant]
     Dosage: UNK
     Dates: start: 20041025
  6. DARVOCET-N 50 [Concomitant]
     Dosage: 100 MG AS NEEDED
     Route: 048
     Dates: start: 20040816
  7. ETOMIDATE [Concomitant]
     Dosage: UNK
     Dates: start: 20041011
  8. FENTANYL [Concomitant]
     Dosage: 1000
     Route: 042
     Dates: start: 20041011
  9. CEFAZOLIN [Concomitant]
     Dosage: 1 GRAM
     Route: 042
     Dates: start: 20041011
  10. RED BLOOD CELLS [Concomitant]
     Dosage: 1 U, ONCE
     Route: 042
     Dates: start: 20041008
  11. TRASYLOL [Suspect]
     Indication: MITRAL VALVE REPLACEMENT
     Dosage: 2 ML INITIAL (TEST) DOSE
     Route: 042
     Dates: start: 20041011, end: 20041011
  12. TRASYLOL [Suspect]
     Dosage: UNK
     Route: 042
     Dates: start: 20041011, end: 20041011
  13. HEPARIN [Concomitant]
     Dosage: 39,000
     Route: 042
     Dates: start: 20041011
  14. MILRINONE [Concomitant]
     Dosage: 2.7 MG
     Route: 042
     Dates: start: 20041011
  15. FUROSEMIDE [Concomitant]
     Dosage: 40 MG, QD
     Route: 048
  16. NIFEDIPINE [Concomitant]
  17. PLAVIX [Concomitant]
     Dosage: 40 MG, QD
     Route: 048
  18. ISOSORBIDE DINITRATE [Concomitant]
     Dosage: 60 MG, TID
     Route: 048
  19. TORSEMIDE [Concomitant]
  20. COREG [Concomitant]
     Dosage: 6.25 MG, BID
     Route: 048
  21. ANCEF [Concomitant]
     Dosage: 2 GRAMS
     Route: 042
     Dates: start: 20041011
  22. TRASYLOL [Suspect]
     Indication: TRICUSPID VALVE REPLACEMENT
     Dosage: 100 ML LOADING DOSE
     Route: 042
     Dates: start: 20041011, end: 20041011
  23. MAGNESIUM [Concomitant]
     Dosage: 2 GRAMS
     Route: 042
     Dates: start: 20041011

REACTIONS (6)
  - PAIN [None]
  - INJURY [None]
  - DEATH [None]
  - RENAL FAILURE [None]
  - UNEVALUABLE EVENT [None]
  - RENAL FAILURE ACUTE [None]
